FAERS Safety Report 8170018-4 (Version None)
Quarter: 2012Q1

REPORT INFORMATION
  Report Type: 
  Country: None (occurrence: None)
  Receive Date: 20120228
  Receipt Date: 20120221
  Transmission Date: 20120608
  Serious: Yes (Other)
  Sender: FDA-Public Use
  Company Number: DE-UCBSA-052073

PATIENT
  Age: 28 Year
  Sex: Female
  Weight: 65 kg

DRUGS (2)
  1. KEPPRA [Suspect]
     Dosage: 500 MG, 10 TABLETS,TOTAL AMOUNT 5000 MG
     Route: 048
  2. CARBAMAZEPINE [Suspect]
     Dosage: 200 MG, 10 TABLETS, TOTAL AMOUNT 2000 MG
     Route: 048

REACTIONS (3)
  - SUICIDE ATTEMPT [None]
  - OVERDOSE [None]
  - TACHYCARDIA [None]
